FAERS Safety Report 11119271 (Version 1)
Quarter: 2015Q2

REPORT INFORMATION
  Report Type: Spontaneous
  Country: US (occurrence: US)
  Receive Date: 20150518
  Receipt Date: 20150518
  Transmission Date: 20150821
  Serious: No
  Sender: FDA-Public Use
  Company Number: US-PFIZER INC-2015162594

PATIENT
  Age: 83 Year
  Sex: Female

DRUGS (3)
  1. VOLTAREN [Suspect]
     Active Substance: DICLOFENAC SODIUM
     Indication: RHEUMATOID ARTHRITIS
     Dosage: 2 G, UNK
     Route: 061
     Dates: start: 20150323
  2. CELEBREX [Suspect]
     Active Substance: CELECOXIB
     Dosage: 1 DF, 2X/DAY
     Route: 048
     Dates: start: 201503
  3. VOLTAREN [Suspect]
     Active Substance: DICLOFENAC SODIUM
     Dosage: 4 G, UNK
     Route: 061
     Dates: start: 20150323

REACTIONS (4)
  - Peripheral swelling [Not Recovered/Not Resolved]
  - Drug administered at inappropriate site [Unknown]
  - Pain [Not Recovered/Not Resolved]
  - Off label use [Unknown]

NARRATIVE: CASE EVENT DATE: 20150323
